FAERS Safety Report 23739504 (Version 1)
Quarter: 2024Q2

REPORT INFORMATION
  Report Type: Spontaneous
  Country: FR (occurrence: FR)
  Receive Date: 20240413
  Receipt Date: 20240413
  Transmission Date: 20240716
  Serious: Yes (Hospitalization, Other)
  Sender: FDA-Public Use
  Company Number: FR-AFSSAPS-CN2024000332

PATIENT
  Age: 69 Year
  Sex: Male
  Weight: 92.9 kg

DRUGS (17)
  1. LAMOTRIGINE [Suspect]
     Active Substance: LAMOTRIGINE
     Indication: Epilepsy
     Dosage: 50 MILLIGRAM, ONCE A DAY 9V0
     Route: 048
     Dates: end: 20240222
  2. LAMOTRIGINE [Suspect]
     Active Substance: LAMOTRIGINE
     Dosage: 100 MILLIGRAM, ONCE A DAY (100 MG PER DAY)
     Route: 048
     Dates: start: 20240222, end: 20240311
  3. OXAZEPAM [Suspect]
     Active Substance: OXAZEPAM
     Indication: Anxiety
     Dosage: 15 MILLIGRAM, ONCE A DAY (5 MG MORNING, NOON AND EVENING)
     Route: 048
     Dates: start: 202401, end: 20240222
  4. OXAZEPAM [Suspect]
     Active Substance: OXAZEPAM
     Dosage: 40 MILLIGRAM, ONCE A DAY (10 MG MORNING AND NOON AND 20 MG IN THE EVENING)
     Route: 048
     Dates: start: 20240222, end: 20240311
  5. OXAZEPAM [Suspect]
     Active Substance: OXAZEPAM
     Dosage: 30 MILLIGRAM, ONCE A DAY ( 10 MG MORNING, NOON AND EVENING)
     Route: 048
     Dates: start: 20240313
  6. MIANSERIN HYDROCHLORIDE [Suspect]
     Active Substance: MIANSERIN HYDROCHLORIDE
     Indication: Mixed anxiety and depressive disorder
     Dosage: 30 MILLIGRAM, ONCE A DAY (30 MG IN THE EVENING)
     Route: 048
     Dates: start: 20240210, end: 20240312
  7. APIXABAN [Concomitant]
     Active Substance: APIXABAN
     Indication: Product used for unknown indication
     Dosage: 2.5 MILLIGRAM, TWO TIMES A DAY (2.5 MG MORNING AND EVENING)
     Route: 048
  8. CANDESARTAN CILEXETIL [Concomitant]
     Active Substance: CANDESARTAN CILEXETIL
     Indication: Hypertension
     Dosage: 16 MILLIGRAM, ONCE A DAY (16 MG IN THE MORNING)
     Route: 048
  9. VALPROATE SODIUM [Concomitant]
     Active Substance: VALPROATE SODIUM
     Indication: Epilepsy
     Dosage: 250 MILLIGRAM, TWO TIMES A DAY (250 MG MORNING AND EVENING)
     Route: 048
     Dates: start: 202401, end: 20240210
  10. VALPROATE SODIUM [Concomitant]
     Active Substance: VALPROATE SODIUM
     Dosage: 500 MILLIGRAM, TWO TIMES A DAY (500 MG MORNING AND EVENING)
     Route: 048
     Dates: start: 20240210, end: 20240314
  11. VALPROATE SODIUM [Concomitant]
     Active Substance: VALPROATE SODIUM
     Dosage: 500 MILLIGRAM, 3 TIMES A DAY (500 MG MORNING, NOON AND EVENING)
     Route: 048
     Dates: start: 20240314
  12. FENTANYL [Concomitant]
     Active Substance: FENTANYL\FENTANYL CITRATE
     Indication: Back pain
     Dosage: 25 MICROGRAM (EVERY 3 DAYS) (A 25 MCG PATCH EVERY 3 DAYS)
     Route: 062
     Dates: start: 202310, end: 20240314
  13. FENTANYL [Concomitant]
     Active Substance: FENTANYL\FENTANYL CITRATE
     Dosage: 12 MICROGRAM 9V0
     Route: 062
     Dates: start: 20240314
  14. CLOZAPINE [Concomitant]
     Active Substance: CLOZAPINE
     Indication: Behaviour disorder
     Dosage: 25 MILLIGRAM, ONCE A DAY (25 MG IN THE MORNING)
     Route: 048
     Dates: start: 20240210, end: 20240315
  15. ALFUZOSIN HYDROCHLORIDE [Concomitant]
     Active Substance: ALFUZOSIN HYDROCHLORIDE
     Indication: Benign prostatic hyperplasia
     Dosage: 10 MILLIGRAM, ONCE A DAY (V)
     Route: 048
  16. LERCANIDIPINE HYDROCHLORIDE [Concomitant]
     Active Substance: LERCANIDIPINE HYDROCHLORIDE
     Indication: Hypertension
     Dosage: 10 MILLIGRAM, ONCE A DAY (10 MG IN THE MORNING)
     Route: 048
  17. ATORVASTATIN [Concomitant]
     Active Substance: ATORVASTATIN
     Indication: Dyslipidaemia
     Dosage: 20 MILLIGRAM, ONCE A DAY (20 MG IN THE EVENING)
     Route: 048

REACTIONS (1)
  - Generalised tonic-clonic seizure [Recovered/Resolved]

NARRATIVE: CASE EVENT DATE: 20240313
